FAERS Safety Report 6647052-6 (Version None)
Quarter: 2010Q1

REPORT INFORMATION
  Report Type: 
  Country: None (occurrence: None)
  Receive Date: 20100323
  Receipt Date: 20100312
  Transmission Date: 20100710
  Serious: Yes (Other)
  Sender: FDA-Public Use
  Company Number: US-BAXTER-2010BH007248

PATIENT
  Age: 13 Year
  Sex: Male

DRUGS (2)
  1. CYCLOPHOSPHAMIDE [Suspect]
     Indication: APLASTIC ANAEMIA
     Route: 042
  2. MESNA [Concomitant]
     Indication: PROPHYLAXIS
     Route: 042

REACTIONS (3)
  - BACTERAEMIA [None]
  - ERYTHEMA INFECTIOSUM [None]
  - MUCOSAL INFLAMMATION [None]
